FAERS Safety Report 17112446 (Version 1)
Quarter: 2019Q4

REPORT INFORMATION
  Report Type: Spontaneous
  Country: US (occurrence: US)
  Receive Date: 20191112
  Receipt Date: 20191112
  Transmission Date: 20200122
  Serious: No
  Sender: FDA-Public Use
  Company Number: None

PATIENT
  Age: 55 Year
  Sex: Female

DRUGS (1)
  1. COPAXONE [Suspect]
     Active Substance: GLATIRAMER ACETATE
     Route: 058
     Dates: start: 201710

REACTIONS (3)
  - Diabetes mellitus [None]
  - Unevaluable event [None]
  - General physical health deterioration [None]

NARRATIVE: CASE EVENT DATE: 20191112
